FAERS Safety Report 14346064 (Version 2)
Quarter: 2018Q1

REPORT INFORMATION
  Report Type: Spontaneous
  Country: CN (occurrence: CN)
  Receive Date: 20180103
  Receipt Date: 20180220
  Transmission Date: 20180509
  Serious: Yes (Hospitalization)
  Sender: FDA-Public Use
  Company Number: CN-NOVOPROD-578978

PATIENT
  Age: 56 Year
  Sex: Female
  Weight: 66 kg

DRUGS (2)
  1. NOVOLIN [Suspect]
     Active Substance: INSULIN HUMAN
     Indication: TYPE 1 DIABETES MELLITUS
     Dosage: STARTED 9 YEARS AGO
     Route: 058
  2. NOVOLIN [Suspect]
     Active Substance: INSULIN HUMAN
     Dosage: 50 IU, QD (18IU IN THE MORNING, 14 IU AT NOON, AND 18IU IN THE EVENING)
     Route: 058
     Dates: start: 20171204, end: 20171207

REACTIONS (3)
  - Diabetic ketoacidosis [Unknown]
  - Device leakage [Unknown]
  - Product container issue [Unknown]

NARRATIVE: CASE EVENT DATE: 20171205
